FAERS Safety Report 13692293 (Version 2)
Quarter: 2017Q3

REPORT INFORMATION
  Report Type: Spontaneous
  Country: FI (occurrence: FI)
  Receive Date: 20170627
  Receipt Date: 20170713
  Transmission Date: 20171127
  Serious: Yes (Other)
  Sender: FDA-Public Use
  Company Number: FI-CONCORDIA PHARMACEUTICALS INC.-GSH201706-003798

PATIENT
  Age: 36 Year
  Sex: Female

DRUGS (4)
  1. SOLOMET DEPOT C. BUPIVACAIN [Concomitant]
     Indication: TENDONITIS
  2. BENZYL ALCOHOL [Suspect]
     Active Substance: BENZYL ALCOHOL
  3. LOCACORTEN-VIOFORM [Concomitant]
     Indication: OTITIS EXTERNA
  4. CIPROXIN-HYDROCORTISON [Concomitant]
     Indication: OTITIS EXTERNA

REACTIONS (2)
  - Drug hypersensitivity [Unknown]
  - Dermatitis contact [Unknown]
